FAERS Safety Report 14373293 (Version 4)
Quarter: 2018Q1

REPORT INFORMATION
  Report Type: Spontaneous
  Country: DE (occurrence: DE)
  Receive Date: 20180110
  Receipt Date: 20180124
  Transmission Date: 20180509
  Serious: Yes (Other)
  Sender: FDA-Public Use
  Company Number: PHHY2017DE177222

PATIENT
  Age: 52 Year
  Sex: Female

DRUGS (4)
  1. PREDNISOLONE. [Suspect]
     Active Substance: PREDNISOLONE
     Indication: PEMPHIGUS
     Dosage: 120 MG, QD (2 MG/KG BODY WEIGHT)
     Route: 065
  2. PREDNISOLONE. [Suspect]
     Active Substance: PREDNISOLONE
     Dosage: 200 MG, QD
     Route: 065
  3. MYCOPHENOLATE MOFETIL. [Suspect]
     Active Substance: MYCOPHENOLATE MOFETIL
     Indication: PEMPHIGUS
     Dosage: 3 G, QD
     Route: 065
  4. PREDNISOLONE. [Suspect]
     Active Substance: PREDNISOLONE
     Dosage: 80 MG, QD
     Route: 065

REACTIONS (5)
  - Cytomegalovirus infection [Recovering/Resolving]
  - Herpes simplex [Recovering/Resolving]
  - Varicella zoster virus infection [Recovering/Resolving]
  - Atypical pneumonia [Unknown]
  - Infection reactivation [Recovering/Resolving]
